FAERS Safety Report 8041691-6 (Version None)
Quarter: 2012Q1

REPORT INFORMATION
  Report Type: 
  Country: None (occurrence: None)
  Receive Date: 20120112
  Receipt Date: 20120103
  Transmission Date: 20120608
  Serious: Yes (Hospitalization)
  Sender: FDA-Public Use
  Company Number: FR-JNJFOC-20111209465

PATIENT
  Sex: Male

DRUGS (3)
  1. ZYTIGA [Suspect]
     Indication: PROSTATE CANCER METASTATIC
     Route: 048
     Dates: start: 20111116
  2. INNOHEP [Concomitant]
     Indication: VENOUS THROMBOSIS
     Route: 058
     Dates: end: 20111101
  3. INNOHEP [Concomitant]
     Indication: PULMONARY EMBOLISM
     Route: 058
     Dates: end: 20111101

REACTIONS (2)
  - DEEP VEIN THROMBOSIS [None]
  - CONDITION AGGRAVATED [None]
